FAERS Safety Report 9160828 (Version 1)
Quarter: 2013Q1

REPORT INFORMATION
  Report Type: Report from Study
  Country: NL (occurrence: NL)
  Receive Date: 20130313
  Receipt Date: 20130313
  Transmission Date: 20140127
  Serious: Yes (Hospitalization)
  Sender: FDA-Public Use
  Company Number: NL-BAXTER-2013BAX007827

PATIENT
  Age: 65 Year
  Sex: Female
  Weight: 75 kg

DRUGS (37)
  1. ENDOXAN I.V., POEDER VOOR OPLOSSING VOOR INJECTIE 200, 500, 1000 MG [Suspect]
     Indication: DIFFUSE LARGE B-CELL LYMPHOMA
     Route: 042
     Dates: start: 20120223
  2. ENDOXAN I.V., POEDER VOOR OPLOSSING VOOR INJECTIE 200, 500, 1000 MG [Suspect]
     Route: 042
     Dates: start: 20120323
  3. ENDOXAN I.V., POEDER VOOR OPLOSSING VOOR INJECTIE 200, 500, 1000 MG [Suspect]
     Route: 042
     Dates: start: 20120504, end: 20120504
  4. ENDOXAN I.V., POEDER VOOR OPLOSSING VOOR INJECTIE 200, 500, 1000 MG [Suspect]
     Route: 042
     Dates: start: 20120625
  5. RITUXIMAB [Suspect]
     Indication: DIFFUSE LARGE B-CELL LYMPHOMA
     Route: 042
     Dates: start: 20120223
  6. RITUXIMAB [Suspect]
     Route: 042
     Dates: start: 20120322
  7. RITUXIMAB [Suspect]
     Route: 042
     Dates: start: 20120504
  8. RITUXIMAB [Suspect]
     Route: 042
     Dates: start: 20120525
  9. RITUXIMAB [Suspect]
     Route: 042
     Dates: start: 20120615
  10. NEULASTA [Suspect]
     Indication: DIFFUSE LARGE B-CELL LYMPHOMA
     Route: 058
     Dates: start: 20120223
  11. NEULASTA [Suspect]
     Route: 058
     Dates: start: 20120324
  12. NEULASTA [Suspect]
     Route: 058
     Dates: start: 20120505
  13. DOXORUBICIN [Suspect]
     Indication: DIFFUSE LARGE B-CELL LYMPHOMA
     Route: 042
     Dates: start: 20120223
  14. DOXORUBICIN [Suspect]
     Route: 042
     Dates: start: 20120323
  15. DOXORUBICIN [Suspect]
     Route: 042
     Dates: start: 20120504
  16. DOXORUBICIN [Suspect]
     Route: 042
     Dates: start: 20120525
  17. DOXORUBICIN [Suspect]
     Route: 042
     Dates: start: 20120615
  18. VINCRISTINE [Suspect]
     Indication: DIFFUSE LARGE B-CELL LYMPHOMA
     Route: 042
     Dates: start: 20120223
  19. VINCRISTINE [Suspect]
     Route: 042
     Dates: start: 20120323
  20. VINCRISTINE [Suspect]
     Route: 042
     Dates: start: 20120504, end: 20120504
  21. VINCRISTINE [Suspect]
     Route: 042
     Dates: start: 20120625
  22. PREDNISONE [Suspect]
     Indication: DIFFUSE LARGE B-CELL LYMPHOMA
     Route: 042
     Dates: start: 20120223
  23. PREDNISONE [Suspect]
     Route: 042
     Dates: start: 20120323
  24. PREDNISONE [Suspect]
     Route: 048
     Dates: start: 20120504
  25. PREDNISONE [Suspect]
     Route: 048
     Dates: start: 20120525
  26. PREDNISONE [Suspect]
     Route: 048
     Dates: start: 20120615
  27. PANTOPRAZOLE [Concomitant]
     Indication: PRODUCT USED FOR UNKNOWN INDICATION
     Route: 048
     Dates: start: 20111031, end: 20120602
  28. HYDROCHLOROTHIAZIDE [Concomitant]
     Indication: HYPERTENSION
     Route: 048
     Dates: start: 20111031
  29. ENALAPRIL MALEATE [Concomitant]
     Indication: HYPERTENSION
     Route: 048
     Dates: start: 20111031
  30. TRAMADOL [Concomitant]
     Indication: PAIN
     Route: 048
     Dates: start: 20120406, end: 20120602
  31. CARBASALATE CALCIUM [Concomitant]
     Indication: EMBOLISM
     Route: 048
  32. CARBASALATE CALCIUM [Concomitant]
     Indication: EMBOLISM
     Route: 048
  33. PARACETAMOL [Concomitant]
     Indication: PAIN
     Route: 048
  34. APREPITANT [Concomitant]
     Indication: PROPHYLAXIS
     Route: 048
     Dates: start: 20120323, end: 20120325
  35. ZOLPIDEM [Concomitant]
     Indication: SLEEP DISORDER
     Route: 048
     Dates: start: 20111031, end: 20120330
  36. MOVICOLON [Concomitant]
     Indication: PRODUCT USED FOR UNKNOWN INDICATION
     Dosage: 1 SACHET
     Route: 048
     Dates: start: 20120323, end: 20120602
  37. ACETYLSALICYLIC ACID [Concomitant]
     Indication: PRODUCT USED FOR UNKNOWN INDICATION
     Route: 048
     Dates: start: 20111031, end: 20120602

REACTIONS (7)
  - Febrile neutropenia [Recovered/Resolved]
  - Diarrhoea [Unknown]
  - Abdominal pain [Recovered/Resolved]
  - Gastric ulcer [Recovered/Resolved]
  - Febrile neutropenia [Recovered/Resolved]
  - Febrile neutropenia [Recovered/Resolved]
  - Febrile neutropenia [Not Recovered/Not Resolved]
